FAERS Safety Report 16839720 (Version 1)
Quarter: 2019Q4

REPORT INFORMATION
  Report Type: Spontaneous
  Country: US (occurrence: US)
  Receive Date: 20190922
  Receipt Date: 20190922
  Transmission Date: 20200122
  Serious: No
  Sender: FDA-Public Use
  Company Number: None

PATIENT
  Age: 65 Year
  Sex: Female
  Weight: 59.4 kg

DRUGS (12)
  1. CA CITRATE [Concomitant]
  2. DOCUSATE [Concomitant]
     Active Substance: DOCUSATE
  3. PROBIOTICS [Concomitant]
     Active Substance: PROBIOTICS NOS
  4. VIT D [Concomitant]
     Active Substance: VITAMIN D NOS
  5. GLUCOSAMINE/CHONDROITIN [Concomitant]
  6. ATENOLOL. [Concomitant]
     Active Substance: ATENOLOL
  7. VITAMIN B COMPLEX [Concomitant]
     Active Substance: CYANOCOBALAMIN\DEXPANTHENOL\NIACINAMIDE\PYRIDOXINE HYDROCHLORIDE\RIBOFLAVIN 5^-PHOSPHATE SODIUM\THIAMINE HYDROCHLORIDE\VITAMIN B COMPLEX
  8. CHOLESTOFF [Concomitant]
  9. VITAMIN C [Concomitant]
     Active Substance: ASCORBIC ACID
  10. ICY HOT MEDICATED, XL [Suspect]
     Active Substance: MENTHOL
     Indication: BACK PAIN
     Dosage: ?          QUANTITY:1 PATCH(ES);?
     Route: 062
     Dates: start: 20190912, end: 20190913
  11. FISH OIL [Concomitant]
     Active Substance: FISH OIL
  12. VITAMIN E [Concomitant]
     Active Substance: .ALPHA.-TOCOPHEROL

REACTIONS (2)
  - Application site erythema [None]
  - Product adhesion issue [None]

NARRATIVE: CASE EVENT DATE: 20190912
